FAERS Safety Report 6000589-5 (Version None)
Quarter: 2008Q4

REPORT INFORMATION
  Report Type: 
  Country: None (occurrence: None)
  Receive Date: 20081215
  Receipt Date: 20081201
  Transmission Date: 20090506
  Serious: Yes (Other)
  Sender: FDA-Public Use
  Company Number: IT-ROCHE-602181

PATIENT

DRUGS (3)
  1. CAPECITABINE [Suspect]
     Indication: BREAST CANCER
     Dosage: CYCLES REPEATED EVERY 14 DAYS AFTER MEALS
     Route: 048
  2. BEVACIZUMAB [Suspect]
     Indication: BREAST CANCER
     Dosage: EVERY 14 DAYS
     Route: 042
  3. CYCLOPHOSPHAMIDE [Suspect]
     Indication: BREAST CANCER
     Dosage: CYCLES REPEATED EVERY 14 DAYS
     Route: 048

REACTIONS (1)
  - NEPHROTIC SYNDROME [None]
